FAERS Safety Report 9386058 (Version 3)
Quarter: 2013Q3

REPORT INFORMATION
  Report Type: Report from Study
  Country: GB (occurrence: GB)
  Receive Date: 20130706
  Receipt Date: 20130920
  Transmission Date: 20140515
  Serious: Yes (Hospitalization, Other)
  Sender: FDA-Public Use
  Company Number: PHHY2012GB120583

PATIENT
  Age: 78 Year
  Sex: Male

DRUGS (3)
  1. RANIBIZUMAB [Suspect]
     Indication: AGE-RELATED MACULAR DEGENERATION
     Dosage: 0.5 MG, UNK
     Dates: start: 20090530
  2. RANIBIZUMAB [Suspect]
     Dosage: 0.5 MG, UNK
     Dates: start: 20110201
  3. CIPROFLOXACIN [Suspect]
     Dosage: UNK UKN, UNK

REACTIONS (13)
  - Intestinal perforation [Recovered/Resolved]
  - Atrial fibrillation [Unknown]
  - Intestinal dilatation [Recovered/Resolved]
  - Malaise [Recovered/Resolved]
  - Large intestinal obstruction [Recovered/Resolved]
  - Vomiting [Recovered/Resolved]
  - Colitis [Recovered/Resolved]
  - Diarrhoea [Recovered/Resolved]
  - Clostridium difficile infection [Recovered/Resolved]
  - Multi-organ failure [Recovered/Resolved]
  - Diverticulum [Recovered/Resolved]
  - Beta haemolytic streptococcal infection [Recovered/Resolved]
  - Blood potassium decreased [Recovered/Resolved]
